FAERS Safety Report 21632803 (Version 1)
Quarter: 2022Q4

REPORT INFORMATION
  Report Type: Spontaneous
  Country: US (occurrence: None)
  Receive Date: 20221122
  Receipt Date: 20221122
  Transmission Date: 20230113
  Serious: Yes (Death)
  Sender: FDA-Public Use
  Company Number: None

PATIENT
  Age: 31 Year
  Sex: Male

DRUGS (1)
  1. BOTOX [Suspect]
     Active Substance: ONABOTULINUMTOXINA
     Dosage: OTHER QUANTITY : 400 UNITS;?OTHER FREQUENCY : OTHER;?
     Route: 030
     Dates: start: 20180817

REACTIONS (1)
  - Death [None]

NARRATIVE: CASE EVENT DATE: 20221121
